FAERS Safety Report 4505292-6 (Version None)
Quarter: 2004Q4

REPORT INFORMATION
  Report Type: 
  Country: None (occurrence: None)
  Receive Date: 20041018
  Receipt Date: 20031210
  Transmission Date: 20050328
  Serious: Yes (Other)
  Sender: FDA-Public Use
  Company Number: PHEH2003US11294

PATIENT
  Sex: Female

DRUGS (1)
  1. MIACALCIN [Suspect]
     Dosage: 200 IU, QD, INTRANASAL
     Route: 045
     Dates: end: 20031030

REACTIONS (1)
  - ANAPHYLACTIC REACTION [None]
